FAERS Safety Report 8970010 (Version 1)
Quarter: 2012Q4

REPORT INFORMATION
  Report Type: 
  Country: US (occurrence: US)
  Receive Date: 20121217
  Receipt Date: 20121217
  Transmission Date: 20130627
  Serious: No
  Sender: FDA-Public Use
  Company Number: US-PFIZER INC-2012313358

PATIENT
  Sex: Female

DRUGS (2)
  1. XALATAN [Suspect]
     Dosage: UNK
     Route: 047
  2. LIPITOR [Suspect]
     Dosage: UNK

REACTIONS (1)
  - Fall [Unknown]
